FAERS Safety Report 4690788-7 (Version None)
Quarter: 2005Q2

REPORT INFORMATION
  Report Type: 
  Country: None (occurrence: None)
  Receive Date: 20050613
  Receipt Date: 20050601
  Transmission Date: 20051028
  Serious: Yes (Death)
  Sender: FDA-Public Use
  Company Number: MEDI- 0003472

PATIENT
  Sex: Male

DRUGS (1)
  1. SYNAGIS [Suspect]
     Dosage: 1 IN 30 D, INTRAMUSCULAR
     Route: 030

REACTIONS (1)
  - RESPIRATORY SYNCYTIAL VIRUS INFECTION [None]
